FAERS Safety Report 6994229-6 (Version None)
Quarter: 2010Q3

REPORT INFORMATION
  Report Type: 
  Country: None (occurrence: None)
  Receive Date: 20100917
  Receipt Date: 20100511
  Transmission Date: 20110219
  Serious: No
  Sender: FDA-Public Use
  Company Number: US-ASTRAZENECA-2010SE21510

PATIENT
  Age: 9 Year
  Sex: Male

DRUGS (2)
  1. SEROQUEL [Suspect]
     Indication: DEPRESSION
     Route: 048
     Dates: start: 20080101, end: 20080101
  2. SEROQUEL [Suspect]
     Indication: ANXIETY
     Route: 048
     Dates: start: 20080101, end: 20080101

REACTIONS (1)
  - SELF INJURIOUS BEHAVIOUR [None]
